FAERS Safety Report 4777221-1 (Version None)
Quarter: 2005Q3

REPORT INFORMATION
  Report Type: 
  Country: None (occurrence: None)
  Receive Date: 20050923
  Receipt Date: 20050919
  Transmission Date: 20060218
  Serious: Yes (Other)
  Sender: FDA-Public Use
  Company Number: PHFR2005GB03098

PATIENT
  Age: 35 Year
  Sex: Male
  Weight: 114 kg

DRUGS (3)
  1. GLEEVEC [Suspect]
     Indication: CHRONIC MYELOID LEUKAEMIA
     Dosage: 700MG DAILY
     Route: 048
     Dates: start: 20030101
  2. PENICILLIN V [Concomitant]
     Indication: PROPHYLAXIS
     Dosage: 250 MG, BID
     Route: 048
     Dates: start: 20020101
  3. MAGNESIUM [Concomitant]
     Indication: MUSCLE SPASMS
     Dosage: 160-480MG QD VARIABLE
     Route: 048
     Dates: start: 20020101

REACTIONS (2)
  - PHOTOSENSITIVITY REACTION [None]
  - VISUAL ACUITY REDUCED [None]
